FAERS Safety Report 6305797-1 (Version None)
Quarter: 2009Q3

REPORT INFORMATION
  Report Type: 
  Country: None (occurrence: None)
  Receive Date: 20090812
  Receipt Date: 20070723
  Transmission Date: 20100115
  Serious: Yes (Other)
  Sender: FDA-Public Use
  Company Number: US-ASTRAZENECA-2006UW25846

PATIENT
  Age: 13165 Day
  Sex: Female
  Weight: 103.9 kg

DRUGS (22)
  1. SEROQUEL [Suspect]
     Indication: BIPOLAR DISORDER
     Dosage: 50 TO 100 MG
     Route: 048
     Dates: start: 19990101
  2. SEROQUEL [Suspect]
     Indication: DEPRESSION
     Dosage: 50 TO 100 MG
     Route: 048
     Dates: start: 19990101
  3. SEROQUEL [Suspect]
     Indication: SLEEP DISORDER
     Dosage: 50 TO 100 MG
     Route: 048
     Dates: start: 19990101
  4. SEROQUEL [Suspect]
     Indication: ANXIETY
     Dosage: 50 TO 100 MG
     Route: 048
     Dates: start: 19990101
  5. SEROQUEL [Suspect]
     Indication: AFFECTIVE DISORDER
     Dosage: 50 TO 100 MG
     Route: 048
     Dates: start: 19990101
  6. SEROQUEL [Suspect]
     Dosage: 25 MG TO 100 MG
     Route: 048
     Dates: start: 20040206
  7. SEROQUEL [Suspect]
     Dosage: 25 MG TO 100 MG
     Route: 048
     Dates: start: 20040206
  8. SEROQUEL [Suspect]
     Dosage: 25 MG TO 100 MG
     Route: 048
     Dates: start: 20040206
  9. SEROQUEL [Suspect]
     Dosage: 25 MG TO 100 MG
     Route: 048
     Dates: start: 20040206
  10. SEROQUEL [Suspect]
     Dosage: 25 MG TO 100 MG
     Route: 048
     Dates: start: 20040206
  11. LITHIUM CARBONATE [Concomitant]
  12. LAMICTAL [Concomitant]
     Indication: DEPRESSION
     Dosage: 25 MG TO 100 MG
     Dates: start: 20040223, end: 20040312
  13. LAMICTAL [Concomitant]
     Indication: BIPOLAR DISORDER
     Dosage: 25 MG TO 100 MG
     Dates: start: 20040223, end: 20040312
  14. DEPAKOTE [Concomitant]
     Indication: DEPRESSIVE SYMPTOM
     Dosage: 250 MG TO 1000 MG
     Dates: start: 19970101
  15. METFORMIN [Concomitant]
     Indication: DIABETES MELLITUS
     Dosage: 500 MG TO 2000 MG
     Dates: start: 20040209
  16. AMARYL [Concomitant]
     Indication: DIABETES MELLITUS
     Dates: start: 20040101
  17. PRINIVIL [Concomitant]
     Indication: HYPERTENSION
     Dosage: 2.5 MG TO 20 MG
     Dates: start: 20040123
  18. HYDROCHLOROTHIAZIDE [Concomitant]
     Indication: HYPERTENSION
     Dates: start: 20040123
  19. TYLENOL (CAPLET) [Concomitant]
     Indication: PAIN
     Dates: start: 20040424
  20. WELLBUTRIN [Concomitant]
     Dosage: 150 MG TO 300 MG
     Route: 048
     Dates: start: 20040424
  21. ZOLOFT [Concomitant]
     Dates: start: 19970101
  22. TRAZODONE HCL [Concomitant]
     Dates: start: 20000920

REACTIONS (5)
  - DIABETES MELLITUS [None]
  - DIABETIC KETOACIDOSIS [None]
  - HYPERGLYCAEMIA [None]
  - NEUROPATHY PERIPHERAL [None]
  - TYPE 2 DIABETES MELLITUS [None]
